FAERS Safety Report 9681037 (Version 1)
Quarter: 2013Q4

REPORT INFORMATION
  Report Type: Spontaneous
  Country: US (occurrence: US)
  Receive Date: 20131111
  Receipt Date: 20131111
  Transmission Date: 20140711
  Serious: No
  Sender: FDA-Public Use
  Company Number: US-009507513-1311USA003751

PATIENT
  Age: 24 Year
  Sex: Female
  Weight: 113.38 kg

DRUGS (1)
  1. IMPLANON [Suspect]
     Indication: CONTRACEPTION
     Dosage: 3 YEAR IMPLANT
     Route: 059
     Dates: start: 20130415

REACTIONS (4)
  - Weight increased [Unknown]
  - Implant site pain [Unknown]
  - Implant site swelling [Unknown]
  - Device kink [Not Recovered/Not Resolved]
